FAERS Safety Report 7236098-5 (Version None)
Quarter: 2011Q1

REPORT INFORMATION
  Report Type: 
  Country: None (occurrence: None)
  Receive Date: 20110120
  Receipt Date: 20101130
  Transmission Date: 20110831
  Serious: Yes (Hospitalization, Other)
  Sender: FDA-Public Use
  Company Number: US-BAYER-201028638NA

PATIENT
  Sex: Female
  Weight: 94.785 kg

DRUGS (23)
  1. FLEXERIL [Concomitant]
     Indication: MUSCLE RELAXANT THERAPY
     Dosage: UNK
     Dates: start: 20070507
  2. HYDROCODONE [Concomitant]
     Indication: PAIN
     Dosage: UNK
     Dates: start: 20010320, end: 20081108
  3. CEPHALEXIN [Concomitant]
     Dosage: 500 MG, UNK
     Dates: start: 20060123
  4. YAZ [Suspect]
     Indication: CONTRACEPTION
     Dosage: UNK UNK, UNK
     Route: 048
     Dates: start: 20070101, end: 20070501
  5. YASMIN [Suspect]
     Indication: CONTRACEPTION
     Dosage: UNK
     Dates: start: 20020901, end: 20070101
  6. CLINDAMYCIN [Concomitant]
     Dosage: 150 MG, UNK
     Dates: start: 20061211
  7. AZITHROMYCIN [Concomitant]
     Dosage: 250 MG, UNK
     Dates: start: 20061114
  8. AZITHROMYCIN [Concomitant]
     Dosage: 250 MG, UNK
     Dates: start: 20070716
  9. AZITHROMYCIN [Concomitant]
     Dosage: 250 MG, UNK
     Dates: start: 20080903
  10. OXYCODONE HCL AND ACETAMINOPHEN [Concomitant]
     Dosage: UNK
     Dates: start: 20060123
  11. PROMETHAZINE [Concomitant]
     Dosage: UNK
     Dates: start: 20010514, end: 20060123
  12. EFFEXOR XR [Concomitant]
     Dosage: UNK
     Dates: start: 20020529, end: 20061024
  13. LEXAPRO [Concomitant]
     Dosage: 10 MG, UNK
     Dates: start: 20070614
  14. AZITHROMYCIN [Concomitant]
     Dosage: 250 MG, UNK
     Dates: start: 20061024
  15. CEPHALEXIN [Concomitant]
     Dosage: 500 MG, UNK
     Dates: start: 20010904
  16. CELEBREX [Concomitant]
     Dosage: 200 MG, UNK
     Dates: start: 20050916
  17. PROPOXYPHENE [Concomitant]
     Dosage: UNK
     Dates: start: 20020726, end: 20081211
  18. YAZ [Suspect]
     Indication: PREMENSTRUAL SYNDROME
     Dosage: UNK
     Dates: start: 20071101, end: 20090601
  19. CEPHALEXIN [Concomitant]
     Dosage: 500 MG, UNK
     Dates: start: 20061104
  20. YASMIN [Suspect]
     Indication: PREMENSTRUAL SYNDROME
     Dosage: UNK
     Dates: start: 20070501, end: 20071101
  21. ALPRAZOLAM [Concomitant]
     Indication: ANXIETY
     Dosage: 0.5 MG, UNK
     Dates: start: 20070629
  22. LEXAPRO [Concomitant]
     Dosage: 10 MG, UNK
     Dates: start: 20070314
  23. CLINDAMYCIN [Concomitant]
     Dosage: 150 MG, UNK
     Dates: start: 20080414

REACTIONS (3)
  - CHOLECYSTITIS CHRONIC [None]
  - PANCREATITIS [None]
  - NEPHROLITHIASIS [None]
